FAERS Safety Report 16988311 (Version 2)
Quarter: 2020Q1

REPORT INFORMATION
  Report Type: Report from Study
  Country: AU (occurrence: AU)
  Receive Date: 20191104
  Receipt Date: 20200114
  Transmission Date: 20200409
  Serious: Yes (Other)
  Sender: FDA-Public Use
  Company Number: AU-GLAXOSMITHKLINE-AU2019APC170320

PATIENT

DRUGS (4)
  1. MEPOLIZUMAB [Suspect]
     Active Substance: MEPOLIZUMAB
     Dosage: 100 MG, UNK
  2. MEPOLIZUMAB [Suspect]
     Active Substance: MEPOLIZUMAB
     Dosage: 100 MG
     Route: 058
     Dates: start: 20191023
  3. MEPOLIZUMAB [Suspect]
     Active Substance: MEPOLIZUMAB
     Dosage: 100 MG, UNK
     Route: 058
  4. MEPOLIZUMAB [Suspect]
     Active Substance: MEPOLIZUMAB
     Indication: ASTHMA
     Dosage: 100 MG, UNK
     Route: 058
     Dates: start: 20171212

REACTIONS (12)
  - Chest discomfort [Recovering/Resolving]
  - Body temperature increased [Recovering/Resolving]
  - Nasopharyngitis [Recovering/Resolving]
  - Productive cough [Recovering/Resolving]
  - Inappropriate schedule of product administration [Unknown]
  - Cough [Recovered/Resolved]
  - Sputum discoloured [Unknown]
  - Wheezing [Recovered/Resolved]
  - Asthma [Unknown]
  - Malaise [Recovering/Resolving]
  - Respiratory tract infection [Recovered/Resolved]
  - Headache [Recovered/Resolved]

NARRATIVE: CASE EVENT DATE: 20190914
